FAERS Safety Report 8011613-2 (Version None)
Quarter: 2011Q4

REPORT INFORMATION
  Report Type: 
  Country: None (occurrence: None)
  Receive Date: 20111123
  Receipt Date: 20110802
  Transmission Date: 20120403
  Serious: No
  Sender: FDA-Public Use
  Company Number: 332992

PATIENT
  Age: 47 Year
  Sex: Male

DRUGS (1)
  1. VICTOZA [Suspect]
     Indication: TYPE 2 DIABETES MELLITUS
     Dosage: 0.6 MG, QD, SUBCUTANEOUS, 1.2 QD, SUBCUTANEOUS
     Route: 058
     Dates: start: 20100801

REACTIONS (7)
  - RETCHING [None]
  - INJECTION SITE HAEMORRHAGE [None]
  - DIZZINESS [None]
  - ASTHENIA [None]
  - VOMITING [None]
  - MALAISE [None]
  - FEELING HOT [None]
